FAERS Safety Report 10978591 (Version 1)
Quarter: 2015Q2

REPORT INFORMATION
  Report Type: Spontaneous
  Country: US (occurrence: US)
  Receive Date: 20150402
  Receipt Date: 20150402
  Transmission Date: 20150821
  Serious: Yes (Other)
  Sender: FDA-Public Use
  Company Number: US-CELGENEUS-USA-2015034814

PATIENT
  Sex: Male

DRUGS (4)
  1. THALOMID [Suspect]
     Active Substance: THALIDOMIDE
     Indication: PROSTATE CANCER
     Route: 048
     Dates: start: 201205, end: 2013
  2. REVLIMID [Suspect]
     Active Substance: LENALIDOMIDE
     Indication: PROSTATE CANCER
     Route: 048
     Dates: start: 201204, end: 2012
  3. THALOMID [Suspect]
     Active Substance: THALIDOMIDE
     Route: 048
     Dates: start: 201406
  4. REVLIMID [Suspect]
     Active Substance: LENALIDOMIDE
     Route: 048
     Dates: start: 201406, end: 2014

REACTIONS (1)
  - Prostate cancer metastatic [Unknown]
